FAERS Safety Report 12485154 (Version 2)
Quarter: 2016Q3

REPORT INFORMATION
  Report Type: Spontaneous
  Country: US (occurrence: US)
  Receive Date: 20160621
  Receipt Date: 20160706
  Transmission Date: 20161109
  Serious: Yes (Other)
  Sender: FDA-Public Use
  Company Number: US-LPDUSPRD-20160504

PATIENT
  Age: 40 Year
  Sex: Female
  Weight: 63.5 kg

DRUGS (2)
  1. INJECTAFER [Suspect]
     Active Substance: FERRIC CARBOXYMALTOSE
     Dosage: 750 MG WEEKLY X2
     Route: 040
     Dates: start: 20160512, end: 20160526
  2. LEVOTHYROXINE. [Concomitant]
     Active Substance: LEVOTHYROXINE
     Dosage: 50 MCG DAILY
     Route: 065

REACTIONS (1)
  - Blood phosphorus decreased [Unknown]
